FAERS Safety Report 19079003 (Version 3)
Quarter: 2021Q2

REPORT INFORMATION
  Report Type: Spontaneous
  Country: IT (occurrence: IT)
  Receive Date: 20210331
  Receipt Date: 20210623
  Transmission Date: 20210717
  Serious: Yes (Other)
  Sender: FDA-Public Use
  Company Number: NVSC2021IT072581

PATIENT
  Age: 83 Year
  Sex: Male

DRUGS (4)
  1. METFORMIN [Suspect]
     Active Substance: METFORMIN HYDROCHLORIDE
     Indication: TYPE 2 DIABETES MELLITUS
     Dosage: UNK
     Route: 065
  2. CYANOCOBALAMIN. [Concomitant]
     Active Substance: CYANOCOBALAMIN
     Indication: VITAMIN B12 DEFICIENCY
     Dosage: UNK
     Route: 065
  3. TENELIGLIPTIN HYDROBROMIDE [Concomitant]
     Active Substance: TENELIGLIPTIN HYDROBROMIDE ANHYDROUS
     Indication: TYPE 2 DIABETES MELLITUS
     Dosage: UNK
     Route: 065
  4. HYDROCHLOROTHIAZIDE. [Concomitant]
     Active Substance: HYDROCHLOROTHIAZIDE
     Indication: HYPERTENSION
     Dosage: UNK
     Route: 065

REACTIONS (4)
  - Neuropathy peripheral [Unknown]
  - Holmes-Adie pupil [Unknown]
  - Pernicious anaemia [Unknown]
  - Orthostatic hypotension [Unknown]
